FAERS Safety Report 7367127-6 (Version None)
Quarter: 2011Q1

REPORT INFORMATION
  Report Type: 
  Country: None (occurrence: None)
  Receive Date: 20110310
  Receipt Date: 20110224
  Transmission Date: 20110831
  Serious: Yes (Other)
  Sender: FDA-Public Use
  Company Number: 028659

PATIENT
  Age: 13 Year
  Sex: Male
  Weight: 84 kg

DRUGS (3)
  1. CONCERTA [Suspect]
     Indication: ATTENTION DEFICIT/HYPERACTIVITY DISORDER
     Dosage: (ORAL) ; (54 MG QD)
     Route: 048
     Dates: start: 20060101, end: 20080101
  2. CONCERTA [Suspect]
     Indication: ATTENTION DEFICIT/HYPERACTIVITY DISORDER
     Dosage: (ORAL) ; (54 MG QD)
     Route: 048
     Dates: start: 20080101, end: 20101101
  3. EQUASYM (EQUASYM) [Suspect]
     Indication: ATTENTION DEFICIT/HYPERACTIVITY DISORDER
     Dosage: (ORAL)
     Route: 048
     Dates: start: 20081201

REACTIONS (3)
  - WEIGHT INCREASED [None]
  - ALANINE AMINOTRANSFERASE INCREASED [None]
  - LIVER FUNCTION TEST ABNORMAL [None]
